FAERS Safety Report 5632379-7 (Version None)
Quarter: 2008Q1

REPORT INFORMATION
  Report Type: 
  Country: None (occurrence: None)
  Receive Date: 20080220
  Receipt Date: 20080208
  Transmission Date: 20080703
  Serious: Yes (Hospitalization, Other)
  Sender: FDA-Public Use
  Company Number: US-ELI_LILLY_AND_COMPANY-US200802001870

PATIENT
  Sex: Female

DRUGS (3)
  1. PROZAC [Suspect]
     Indication: MIGRAINE
     Dosage: UNK, UNK
     Dates: start: 19860101, end: 20070101
  2. CYMBALTA [Suspect]
     Indication: FIBROMYALGIA
     Dosage: 30 MG, DAILY (1/D)
     Dates: start: 20071029, end: 20070101
  3. CYMBALTA [Suspect]
     Dosage: 60 MG, DAILY (1/D)
     Dates: start: 20070101, end: 20080126

REACTIONS (10)
  - COLITIS [None]
  - CONSTIPATION [None]
  - DEPRESSION [None]
  - DRUG WITHDRAWAL SYNDROME [None]
  - FIBROMYALGIA [None]
  - IRRITABILITY [None]
  - MIGRAINE [None]
  - SPINAL FUSION SURGERY [None]
  - TEARFULNESS [None]
  - VISION BLURRED [None]
